FAERS Safety Report 6836749-0 (Version None)
Quarter: 2010Q3

REPORT INFORMATION
  Report Type: 
  Country: None (occurrence: None)
  Receive Date: 20100708
  Receipt Date: 20100625
  Transmission Date: 20110219
  Serious: Yes (Other)
  Sender: FDA-Public Use
  Company Number: 232544J10USA

PATIENT
  Age: 29 Year
  Sex: Female

DRUGS (3)
  1. REBIF [Suspect]
     Indication: MULTIPLE SCLEROSIS
     Dosage: SEE IMAGE
     Route: 058
     Dates: start: 20090724, end: 20100308
  2. REBIF [Suspect]
     Indication: MULTIPLE SCLEROSIS
     Dosage: SEE IMAGE
     Route: 058
     Dates: start: 20100409, end: 20100409
  3. REBIF [Suspect]
     Indication: MULTIPLE SCLEROSIS
     Dosage: SEE IMAGE
     Route: 058
     Dates: start: 20100625, end: 20100625

REACTIONS (5)
  - DRUG EXPOSURE DURING PREGNANCY [None]
  - NO THERAPEUTIC RESPONSE [None]
  - PHOTOPHOBIA [None]
  - RETINAL VASCULITIS [None]
  - SCAR [None]
